FAERS Safety Report 13138469 (Version 1)
Quarter: 2017Q1

REPORT INFORMATION
  Report Type: Report from Study
  Country: US (occurrence: US)
  Receive Date: 20170123
  Receipt Date: 20170123
  Transmission Date: 20170428
  Serious: Yes (Other)
  Sender: FDA-Public Use
  Company Number: PHEH2017US001799

PATIENT
  Age: 82 Year
  Sex: Male
  Weight: 72.57 kg

DRUGS (1)
  1. EXJADE [Suspect]
     Active Substance: DEFERASIROX
     Indication: HAEMATOCHEZIA
     Dosage: 500 MG, QD
     Route: 065
     Dates: start: 20161105, end: 20161205

REACTIONS (4)
  - Product use issue [Unknown]
  - Haemorrhage [Not Recovered/Not Resolved]
  - Myelodysplastic syndrome [Unknown]
  - Platelet count decreased [Unknown]

NARRATIVE: CASE EVENT DATE: 20161105
